FAERS Safety Report 9796654 (Version 1)
Quarter: 2014Q1

REPORT INFORMATION
  Report Type: Spontaneous
  Country: IT (occurrence: IT)
  Receive Date: 20140103
  Receipt Date: 20140103
  Transmission Date: 20141002
  Serious: Yes (Hospitalization)
  Sender: FDA-Public Use
  Company Number: IT-WATSON-2013-24178

PATIENT
  Age: 1 Year
  Sex: Male

DRUGS (1)
  1. CAPTOPRIL (UNKNOWN) [Suspect]
     Indication: PRODUCT USED FOR UNKNOWN INDICATION
     Dosage: 25 MG, TOTAL
     Route: 048
     Dates: start: 20131016, end: 20131016

REACTIONS (3)
  - Hypotension [Recovered/Resolved]
  - Overdose [Recovered/Resolved]
  - Drug administration error [Recovered/Resolved]
